FAERS Safety Report 18106296 (Version 2)
Quarter: 2020Q3

REPORT INFORMATION
  Report Type: Report from Study
  Country: US (occurrence: US)
  Receive Date: 20200803
  Receipt Date: 20200805
  Transmission Date: 20201103
  Serious: No
  Sender: FDA-Public Use
  Company Number: NVSC2020US208638

PATIENT
  Age: 32 Year
  Sex: Female

DRUGS (1)
  1. GLATOPA [Suspect]
     Active Substance: GLATIRAMER ACETATE
     Indication: MULTIPLE SCLEROSIS
     Dosage: 40 MG, Q3W
     Route: 058
     Dates: start: 20200722, end: 20200722

REACTIONS (5)
  - Inappropriate schedule of product administration [Unknown]
  - Injection site mass [Unknown]
  - Fatigue [Unknown]
  - Accidental overdose [Unknown]
  - Pain [Unknown]

NARRATIVE: CASE EVENT DATE: 20200722
